FAERS Safety Report 7871468-3 (Version None)
Quarter: 2011Q4

REPORT INFORMATION
  Report Type: 
  Country: None (occurrence: None)
  Receive Date: 20111029
  Receipt Date: 20110302
  Transmission Date: 20120403
  Serious: No
  Sender: FDA-Public Use
  Company Number: US-AMGEN-USASP2011009153

PATIENT
  Age: 56 Year
  Sex: Male

DRUGS (1)
  1. ENBREL [Suspect]
     Indication: ANKYLOSING SPONDYLITIS
     Dosage: 50 MG, QWK
     Dates: start: 20101015

REACTIONS (5)
  - GINGIVAL OPERATION [None]
  - ARTHRITIS [None]
  - INJECTION SITE PAIN [None]
  - ENDODONTIC PROCEDURE [None]
  - DENTAL CARIES [None]
